FAERS Safety Report 8325520-9 (Version None)
Quarter: 2012Q2

REPORT INFORMATION
  Report Type: 
  Country: None (occurrence: None)
  Receive Date: 20120501
  Receipt Date: 20120417
  Transmission Date: 20120825
  Serious: No
  Sender: FDA-Public Use
  Company Number: US-ENDO PHARMACEUTICALS INC.-OPCR20120265

PATIENT
  Sex: Male

DRUGS (4)
  1. OPANA ER [Suspect]
     Indication: BACK PAIN
  2. OPANA ER [Concomitant]
     Indication: BACK PAIN
  3. OPANA ER [Concomitant]
     Indication: NECK PAIN
     Dosage: 40 MG
     Route: 048
     Dates: start: 20120201, end: 20120401
  4. OPANA ER [Suspect]
     Indication: NECK PAIN
     Route: 048
     Dates: start: 20120407

REACTIONS (4)
  - INAPPROPRIATE SCHEDULE OF DRUG ADMINISTRATION [None]
  - DRUG EFFECT DELAYED [None]
  - THROAT IRRITATION [None]
  - FOREIGN BODY [None]
